FAERS Safety Report 4854555-3 (Version None)
Quarter: 2005Q4

REPORT INFORMATION
  Report Type: 
  Country: None (occurrence: None)
  Receive Date: 20051215
  Receipt Date: 20051213
  Transmission Date: 20060501
  Serious: Yes (Life-Threatening, Other)
  Sender: FDA-Public Use
  Company Number: 2005AC01947

PATIENT
  Age: 24281 Day
  Sex: Male

DRUGS (1)
  1. ZESTRIL [Suspect]
     Route: 048
     Dates: start: 20000801

REACTIONS (3)
  - ANXIETY [None]
  - INCREASED APPETITE [None]
  - PHARYNGEAL OEDEMA [None]
